APPROVED DRUG PRODUCT: PHENYTOIN SODIUM
Active Ingredient: PHENYTOIN SODIUM
Strength: 50MG/ML
Dosage Form/Route: INJECTABLE;INJECTION
Application: A088520 | Product #001
Applicant: SOLOPAK MEDICAL PRODUCTS INC
Approved: Dec 17, 1984 | RLD: No | RS: No | Type: DISCN